FAERS Safety Report 5381269-6 (Version None)
Quarter: 2007Q3

REPORT INFORMATION
  Report Type: 
  Country: None (occurrence: None)
  Receive Date: 20070702
  Receipt Date: 20070524
  Transmission Date: 20080115
  Serious: Yes (Hospitalization)
  Sender: FDA-Public Use
  Company Number: SPV1-2007-02566

PATIENT
  Age: 20 Year
  Sex: Female

DRUGS (7)
  1. PENTASA [Suspect]
     Indication: COLITIS ULCERATIVE
     Dosage: 750 MG, 3X/DAY;TID, ORAL ; 2000 MG, ORAL
     Route: 048
     Dates: start: 20070101, end: 20070101
  2. PENTASA [Suspect]
     Indication: COLITIS ULCERATIVE
     Dosage: 750 MG, 3X/DAY;TID, ORAL ; 2000 MG, ORAL
     Route: 048
     Dates: start: 20070314, end: 20070330
  3. LORATADINE [Concomitant]
  4. MAGNESIUM OXIDE (MAGNESIUM OXIDE) [Concomitant]
  5. HYOSCINE HYDROBROMIDE (HYOSCINE HYDROBROMIDE) [Concomitant]
  6. GLYCERIN /00200601/ (GLYCEROL) [Concomitant]
  7. LOPERAMIDE HYDROCHLORIDE [Concomitant]

REACTIONS (1)
  - PYREXIA [None]
